FAERS Safety Report 11715027 (Version 1)
Quarter: 2015Q4

REPORT INFORMATION
  Report Type: Spontaneous
  Country: US (occurrence: US)
  Receive Date: 20151109
  Receipt Date: 20151109
  Transmission Date: 20160304
  Serious: No
  Sender: FDA-Public Use
  Company Number: US-BAYER-2015-460605

PATIENT
  Sex: Male
  Weight: 104.31 kg

DRUGS (3)
  1. CLARITIN [Suspect]
     Active Substance: LORATADINE
     Indication: URTICARIA
     Dosage: 5 DF, ONCE
     Dates: start: 20151102, end: 20151102
  2. CLARITIN [Suspect]
     Active Substance: LORATADINE
     Indication: PRURITUS
  3. CLARITIN [Suspect]
     Active Substance: LORATADINE
     Indication: RASH

REACTIONS (4)
  - Unevaluable event [None]
  - Nausea [None]
  - Product use issue [Unknown]
  - Vomiting [None]

NARRATIVE: CASE EVENT DATE: 20151102
